FAERS Safety Report 7779830-4 (Version None)
Quarter: 2011Q3

REPORT INFORMATION
  Report Type: 
  Country: None (occurrence: None)
  Receive Date: 20110927
  Receipt Date: 20110922
  Transmission Date: 20111222
  Serious: Yes (Death, Hospitalization, Other)
  Sender: FDA-Public Use
  Company Number: JP-PFIZER INC-2011196756

PATIENT
  Age: 56 Year
  Sex: Female
  Weight: 53 kg

DRUGS (12)
  1. LOXONIN [Suspect]
     Dosage: 60 MG, 3X/DAY
     Dates: start: 20110502, end: 20110822
  2. MUCOSTA [Concomitant]
     Dosage: 100 MG, 3X/DAY
     Dates: start: 20110502, end: 20110822
  3. LITHIUM CARBONATE [Concomitant]
     Dosage: 200 MG, 2X/DAY
     Route: 048
     Dates: start: 20101215, end: 20110822
  4. MAGNESIUM OXIDE [Concomitant]
     Dosage: 660 MG, 2X/DAY
     Dates: start: 20110327, end: 20110822
  5. PROMAZINE HYDROCHLORIDE [Concomitant]
     Dosage: 25 MG, 2X/DAY
     Route: 048
     Dates: start: 20110608, end: 20110822
  6. FLUNITRAZEPAM [Concomitant]
     Dosage: 2 MG, 1X/DAY
     Route: 048
     Dates: start: 20101215, end: 20110822
  7. FOLIC ACID [Concomitant]
     Dosage: 5 MG, 2X/DAY
     Dates: start: 20110729, end: 20110822
  8. VALPROATE SEMISODIUM [Concomitant]
     Dosage: 400 MG, 2X/DAY
     Dates: start: 20071117, end: 20110822
  9. LYRICA [Suspect]
     Indication: BACK PAIN
     Dosage: 75 MG, 2X/DAY
     Route: 048
     Dates: start: 20110620, end: 20110822
  10. ABILIFY [Concomitant]
     Dosage: 30 MG, 1X/DAY
     Dates: start: 20101222, end: 20110822
  11. ASENAPINE [Suspect]
     Dosage: 5 MG, 2X/DAY
     Route: 060
     Dates: start: 20110730, end: 20110822
  12. VAGOSTIGMIN POWD [Concomitant]
     Dosage: 2 G, 3X/DAY
     Dates: start: 20110527, end: 20110822

REACTIONS (8)
  - ABDOMINAL ABSCESS [None]
  - UPPER GASTROINTESTINAL HAEMORRHAGE [None]
  - PNEUMONIA [None]
  - ASTHENIA [None]
  - SOMNOLENCE [None]
  - INFECTIOUS PERITONITIS [None]
  - RENAL IMPAIRMENT [None]
  - DIZZINESS [None]
